FAERS Safety Report 9109781 (Version 1)
Quarter: 2013Q1

REPORT INFORMATION
  Report Type: Spontaneous
  Country: US (occurrence: US)
  Receive Date: 20130222
  Receipt Date: 20130222
  Transmission Date: 20140127
  Serious: No
  Sender: FDA-Public Use
  Company Number: US-B.I. PHARMACEUTICALS,INC./RIDGEFIELD-2013-BI-04528BP

PATIENT
  Age: 76 Year
  Sex: Male
  Weight: 80 kg

DRUGS (5)
  1. SPIRIVA [Suspect]
     Indication: DYSPNOEA
     Dosage: 18 MCG
     Route: 055
     Dates: start: 20130214
  2. ALEVE [Concomitant]
     Route: 048
  3. GABAPENTIN [Concomitant]
     Dosage: 900 MG
     Route: 048
  4. CLONAZEPAM [Concomitant]
     Dosage: 1 MG
     Route: 048
  5. AMLODIPINE BESYLATE [Concomitant]
     Dosage: 5 MG
     Route: 048

REACTIONS (2)
  - Glossodynia [Recovered/Resolved]
  - Oral discomfort [Not Recovered/Not Resolved]
